FAERS Safety Report 8723373 (Version 2)
Quarter: 2012Q4

REPORT INFORMATION
  Report Type: 
  Country: AU (occurrence: AU)
  Receive Date: 20120829
  Receipt Date: 20121002
  Transmission Date: 20130627
  Serious: No
  Sender: FDA-Public Use
  Company Number: AU-UCBSA-063400

PATIENT
  Sex: Female

DRUGS (2)
  1. NEUPRO [Suspect]
     Indication: PARKINSON^S DISEASE
     Dosage: FOR TWO MONTHS
     Route: 062
     Dates: start: 2012, end: 2012
  2. OMEPRAZOLE [Concomitant]
     Indication: GASTROOESOPHAGEAL REFLUX DISEASE
     Dosage: FOR 3 MONTHS

REACTIONS (3)
  - Drug hypersensitivity [Recovered/Resolved]
  - Nausea [Recovered/Resolved]
  - Constipation [Recovered/Resolved]
